FAERS Safety Report 8780011 (Version 1)
Quarter: 2012Q4

REPORT INFORMATION
  Report Type: 
  Country: US (occurrence: US)
  Receive Date: 20120912
  Receipt Date: 20120912
  Transmission Date: 20130627
  Serious: No
  Sender: FDA-Public Use
  Company Number: US-VERTEX PHARMACEUTICAL INC.-AE-2012-006376

PATIENT
  Age: 54 Year
  Sex: Female
  Weight: 69.85 kg

DRUGS (7)
  1. INCIVEK [Suspect]
     Indication: HEPATITIS C
     Route: 048
     Dates: start: 20120427, end: 20120720
  2. RIBAVIRIN [Concomitant]
     Indication: HEPATITIS C
     Route: 048
     Dates: start: 20120427
  3. PEGINTERFERON ALFA [Concomitant]
     Indication: HEPATITIS C
     Route: 058
     Dates: start: 20120427
  4. PREMPRO [Concomitant]
     Route: 048
  5. PROZAC [Concomitant]
     Indication: DEPRESSION
     Route: 048
  6. PROZAC [Concomitant]
     Route: 048
     Dates: start: 201205
  7. LISINOPRIL [Concomitant]

REACTIONS (5)
  - Headache [Recovered/Resolved]
  - Depression [Not Recovered/Not Resolved]
  - Rash generalised [Not Recovered/Not Resolved]
  - Anaemia [Not Recovered/Not Resolved]
  - Pruritus [Not Recovered/Not Resolved]
